FAERS Safety Report 7887469-5 (Version None)
Quarter: 2011Q4

REPORT INFORMATION
  Report Type: 
  Country: None (occurrence: None)
  Receive Date: 20111102
  Receipt Date: 20110719
  Transmission Date: 20120403
  Serious: No
  Sender: FDA-Public Use
  Company Number: US-AMGEN-USASP2011036842

PATIENT
  Age: 61 Year
  Sex: Female

DRUGS (2)
  1. ENBREL [Suspect]
     Indication: RHEUMATOID ARTHRITIS
     Dosage: 50 MG, QWK
     Dates: start: 20100601
  2. METHOTREXATE [Concomitant]

REACTIONS (7)
  - ANIMAL SCRATCH [None]
  - VOMITING [None]
  - SCRATCH [None]
  - NAUSEA [None]
  - RHEUMATOID ARTHRITIS [None]
  - OPEN WOUND [None]
  - CONTUSION [None]
